FAERS Safety Report 6380611-7 (Version None)
Quarter: 2009Q3

REPORT INFORMATION
  Report Type: 
  Country: None (occurrence: None)
  Receive Date: 20090929
  Receipt Date: 20090915
  Transmission Date: 20100115
  Serious: Yes (Hospitalization)
  Sender: FDA-Public Use
  Company Number: US-MYLANLABS-2009S1016190

PATIENT
  Age: 45 Year
  Sex: Male

DRUGS (1)
  1. CLARITHROMYCIN [Suspect]
     Indication: ACUTE SINUSITIS
     Dosage: 500MG TWICE DAILY
     Route: 048

REACTIONS (1)
  - RHABDOMYOLYSIS [None]
